FAERS Safety Report 13828772 (Version 1)
Quarter: 2017Q3

REPORT INFORMATION
  Report Type: Spontaneous
  Country: US (occurrence: US)
  Receive Date: 20170802
  Receipt Date: 20170802
  Transmission Date: 20171127
  Serious: Yes (Disabling)
  Sender: FDA-Public Use
  Company Number: None

PATIENT
  Sex: Female

DRUGS (1)
  1. SPIRIVA [Suspect]
     Active Substance: TIOTROPIUM BROMIDE MONOHYDRATE
     Indication: DYSPNOEA
     Dosage: ?          QUANTITY:30 CAPSULE(S);  18 UG/UG?
     Route: 048

REACTIONS (2)
  - Product physical issue [None]
  - Dyspnoea [None]

NARRATIVE: CASE EVENT DATE: 20170724
